FAERS Safety Report 8530251-6 (Version None)
Quarter: 2012Q3

REPORT INFORMATION
  Report Type: 
  Country: None (occurrence: None)
  Receive Date: 20120723
  Receipt Date: 20120711
  Transmission Date: 20120928
  Serious: Yes (Other)
  Sender: FDA-Public Use
  Company Number: JP-VERTEX PHARMACEUTICALS INC.-AE-2012-003087

PATIENT
  Age: 59 Year
  Sex: Male

DRUGS (17)
  1. PEG-INTRON [Concomitant]
     Indication: HEPATITIS C
     Route: 058
     Dates: start: 20120111, end: 20120215
  2. PEG-INTRON [Concomitant]
     Route: 058
     Dates: start: 20120307, end: 20120410
  3. PEG-INTRON [Concomitant]
     Route: 058
     Dates: start: 20120411, end: 20120425
  4. KENALOG [Concomitant]
     Route: 061
     Dates: start: 20120430, end: 20120509
  5. RIBAVIRIN [Concomitant]
     Route: 048
     Dates: start: 20120208
  6. MAGMITT [Concomitant]
     Route: 048
     Dates: start: 20120124
  7. ALLEGRA [Concomitant]
     Route: 048
     Dates: start: 20120328, end: 20120402
  8. TELAVIC (TELAPREVIR) [Suspect]
     Indication: HEPATITIS C
     Route: 048
     Dates: start: 20120111, end: 20120207
  9. PEG-INTRON [Concomitant]
     Route: 058
     Dates: start: 20120523, end: 20120620
  10. TELAVIC (TELAPREVIR) [Suspect]
     Route: 048
     Dates: start: 20120208, end: 20120403
  11. RIBAVIRIN [Concomitant]
     Indication: HEPATITIS C
     Route: 048
     Dates: start: 20120111, end: 20120207
  12. ENSURE LIQUID [Concomitant]
     Route: 048
     Dates: start: 20120307, end: 20120402
  13. PEG-INTRON [Concomitant]
     Route: 058
     Dates: start: 20120502, end: 20120516
  14. RIBAVIRIN [Concomitant]
     Route: 048
     Dates: start: 20120418, end: 20120424
  15. CLOBETASOL PROPIONATE [Concomitant]
     Route: 061
     Dates: start: 20120328
  16. PEG-INTRON [Concomitant]
     Route: 058
     Dates: start: 20120222, end: 20120229
  17. RIBAVIRIN [Concomitant]
     Route: 048
     Dates: start: 20120425, end: 20120702

REACTIONS (4)
  - DRUG ERUPTION [None]
  - ANAEMIA [None]
  - NEUTROPHIL COUNT DECREASED [None]
  - DECREASED APPETITE [None]
